FAERS Safety Report 20878710 (Version 1)
Quarter: 2022Q2

REPORT INFORMATION
  Report Type: Spontaneous
  Country: US (occurrence: US)
  Receive Date: 20220526
  Receipt Date: 20220526
  Transmission Date: 20220721
  Serious: No
  Sender: FDA-Public Use
  Company Number: US-RADIUS HEALTH INC.-2021US002412

PATIENT
  Age: 79 Year
  Sex: Female

DRUGS (4)
  1. TYMLOS [Suspect]
     Active Substance: ABALOPARATIDE
     Indication: Osteoporosis
     Dosage: 80 MCG, EVERY OTHER DAY
     Route: 058
     Dates: start: 20210212
  2. TYMLOS [Suspect]
     Active Substance: ABALOPARATIDE
     Dosage: 80 MCG, QD
     Route: 058
  3. LEVOTHYROXINE [Concomitant]
     Active Substance: LEVOTHYROXINE
     Indication: Hypothyroidism
     Dosage: 50 MG ONCE A DAY
  4. CALCIUM [Concomitant]
     Active Substance: CALCIUM
     Indication: Product used for unknown indication
     Dosage: 1200MG, DAILY
     Route: 048
     Dates: end: 20210513

REACTIONS (13)
  - Migraine [Recovered/Resolved]
  - Cognitive disorder [Recovering/Resolving]
  - Weight decreased [Unknown]
  - Decreased appetite [Unknown]
  - Insomnia [Not Recovered/Not Resolved]
  - Nausea [Recovering/Resolving]
  - Dizziness [Recovering/Resolving]
  - Headache [Recovering/Resolving]
  - Arthralgia [Recovering/Resolving]
  - Fatigue [Not Recovered/Not Resolved]
  - Hypercalcaemia [Recovering/Resolving]
  - Product dose omission issue [Unknown]
  - Intentional product misuse [Unknown]

NARRATIVE: CASE EVENT DATE: 20210212
